FAERS Safety Report 5142140-8 (Version None)
Quarter: 2006Q4

REPORT INFORMATION
  Report Type: 
  Country: None (occurrence: None)
  Receive Date: 20061027
  Receipt Date: 20061016
  Transmission Date: 20070319
  Serious: Yes (Other)
  Sender: FDA-Public Use
  Company Number: 2006129215

PATIENT

DRUGS (1)
  1. BEXTRA [Suspect]

REACTIONS (1)
  - STEVENS-JOHNSON SYNDROME [None]
